FAERS Safety Report 23277108 (Version 1)
Quarter: 2023Q4

REPORT INFORMATION
  Report Type: Spontaneous
  Country: US (occurrence: US)
  Receive Date: 20231208
  Receipt Date: 20231208
  Transmission Date: 20240109
  Serious: No
  Sender: FDA-Public Use
  Company Number: US-AMERICAN REGENT INC-2023002067

PATIENT
  Age: 76 Year
  Sex: Female

DRUGS (1)
  1. VENOFER [Suspect]
     Active Substance: IRON SUCROSE
     Indication: Product used for unknown indication
     Dosage: 400MG IN 250ML NORMAL SALINE.TO BE INFUSED OVER 150 MINUTES
     Route: 042
     Dates: start: 20230825, end: 20230825

REACTIONS (3)
  - Extravasation [Unknown]
  - Infusion site haematoma [Unknown]
  - Infusion site nodule [Unknown]

NARRATIVE: CASE EVENT DATE: 20230825
